FAERS Safety Report 5523590-4 (Version None)
Quarter: 2007Q4

REPORT INFORMATION
  Report Type: 
  Country: None (occurrence: None)
  Receive Date: 20071121
  Receipt Date: 20071114
  Transmission Date: 20080405
  Serious: Yes (Other)
  Sender: FDA-Public Use
  Company Number: US-JNJFOC-20071105485

PATIENT
  Sex: Female

DRUGS (2)
  1. REMICADE [Suspect]
     Indication: CROHN'S DISEASE
     Route: 042
  2. PREDNISONE TAB [Concomitant]

REACTIONS (13)
  - CONTUSION [None]
  - DYSPEPSIA [None]
  - DYSPHAGIA [None]
  - ERYTHEMA [None]
  - FLUSHING [None]
  - HAEMORRHAGE [None]
  - INFUSION RELATED REACTION [None]
  - MOUTH HAEMORRHAGE [None]
  - NAIL DISCOLOURATION [None]
  - PETECHIAE [None]
  - PNEUMONIA [None]
  - RASH PUSTULAR [None]
  - THROAT IRRITATION [None]
